FAERS Safety Report 4425177-3 (Version None)
Quarter: 2004Q3

REPORT INFORMATION
  Report Type: 
  Country: None (occurrence: None)
  Receive Date: 20040811
  Receipt Date: 20040811
  Transmission Date: 20050211
  Serious: No
  Sender: FDA-Public Use
  Company Number: None

PATIENT
  Age: 65 Year
  Sex: Female

DRUGS (7)
  1. PHENYTOIN [Suspect]
  2. RANITIDINE HYDROCHLORIDE [Concomitant]
  3. NOREPINEPHRINE [Concomitant]
  4. MIDAZOLAM HCL [Concomitant]
  5. FENTANYL [Concomitant]
  6. DEXAMETHASONE [Concomitant]
  7. DIPHENHYDRAMINE HCL [Concomitant]

REACTIONS (3)
  - RESPIRATORY DISORDER [None]
  - STEVENS-JOHNSON SYNDROME [None]
  - SWELLING [None]
